FAERS Safety Report 8395446-3 (Version None)
Quarter: 2012Q2

REPORT INFORMATION
  Report Type: 
  Country: None (occurrence: None)
  Receive Date: 20120530
  Receipt Date: 20120522
  Transmission Date: 20120825
  Serious: Yes (Other)
  Sender: FDA-Public Use
  Company Number: TR-VERTEX PHARMACEUTICALS INC.-000000000000000764

PATIENT

DRUGS (3)
  1. PEG-INTRON [Concomitant]
     Dosage: DOSAGE FORM: UNKNOWN
     Route: 065
  2. INCIVO [Suspect]
     Indication: PRODUCT USED FOR UNKNOWN INDICATION
     Dosage: DOSAGE FORM: TABLET
     Route: 048
  3. RIBAVIRIN [Concomitant]
     Dosage: DOSAGE FORM: UNKNOWN
     Route: 065

REACTIONS (2)
  - ANAEMIA [None]
  - HEPATIC NEOPLASM MALIGNANT [None]
